FAERS Safety Report 4881411-7 (Version None)
Quarter: 2005Q4

REPORT INFORMATION
  Report Type: 
  Country: None (occurrence: None)
  Receive Date: 20051212
  Receipt Date: 20050901
  Transmission Date: 20060501
  Serious: No
  Sender: FDA-Public Use
  Company Number: 2005-01876

PATIENT
  Age: 83 Year
  Sex: Male
  Weight: 63.5 kg

DRUGS (3)
  1. VELCADE [Suspect]
     Indication: MANTLE CELL LYMPHOMA
     Dosage: 2/WEEK, INTRAVENOUS
     Route: 042
     Dates: start: 20050823, end: 20050830
  2. GLUCOTROL [Concomitant]
  3. NEBULIZER TREATMENT (NOT SPECIFIED) [Concomitant]

REACTIONS (1)
  - OEDEMA PERIPHERAL [None]
